FAERS Safety Report 6307918-3 (Version None)
Quarter: 2009Q3

REPORT INFORMATION
  Report Type: 
  Country: None (occurrence: None)
  Receive Date: 20090813
  Receipt Date: 20090807
  Transmission Date: 20100115
  Serious: No
  Sender: FDA-Public Use
  Company Number: GB-JNJFOC-20090707706

PATIENT
  Sex: Male

DRUGS (5)
  1. DURAGESIC-100 [Suspect]
     Indication: DRUG USE FOR UNKNOWN INDICATION
     Route: 062
  2. OMEPRAZOLE [Concomitant]
  3. GABAPENTIN [Concomitant]
  4. QUININE SULPHATE [Concomitant]
  5. MELOXICAM [Concomitant]

REACTIONS (2)
  - DEVICE ADHESION ISSUE [None]
  - WRONG TECHNIQUE IN DRUG USAGE PROCESS [None]
